FAERS Safety Report 20393241 (Version 1)
Quarter: 2022Q1

REPORT INFORMATION
  Report Type: Spontaneous
  Country: AU (occurrence: AU)
  Receive Date: 20220128
  Receipt Date: 20220128
  Transmission Date: 20220423
  Serious: Yes (Other)
  Sender: FDA-Public Use
  Company Number: AU-JNJFOC-20220140399

PATIENT
  Age: 31 Year
  Sex: Female
  Weight: 85 kg

DRUGS (1)
  1. REMICADE [Suspect]
     Active Substance: INFLIXIMAB
     Indication: Crohn^s disease
     Route: 042
     Dates: start: 20211210, end: 20211210

REACTIONS (3)
  - Ankle fracture [Recovering/Resolving]
  - Ligament disorder [Unknown]
  - Tendon injury [Unknown]

NARRATIVE: CASE EVENT DATE: 20220114
